FAERS Safety Report 5556044-X (Version None)
Quarter: 2007Q4

REPORT INFORMATION
  Report Type: 
  Country: None (occurrence: None)
  Receive Date: 20071213
  Receipt Date: 20071203
  Transmission Date: 20080405
  Serious: Yes (Hospitalization, Other)
  Sender: FDA-Public Use
  Company Number: US-AMGEN-QUU255106

PATIENT
  Sex: Female

DRUGS (2)
  1. ENBREL [Suspect]
     Indication: RHEUMATOID ARTHRITIS
     Route: 058
     Dates: start: 19991201, end: 20071130
  2. METHOTREXATE [Concomitant]

REACTIONS (10)
  - ARTHRALGIA [None]
  - CHRONIC SINUSITIS [None]
  - DRUG INEFFECTIVE [None]
  - FEELING COLD [None]
  - GALLBLADDER ENLARGEMENT [None]
  - HEPATIC ENZYME INCREASED [None]
  - MENIERE'S DISEASE [None]
  - MUSCULOSKELETAL STIFFNESS [None]
  - STOMACH DISCOMFORT [None]
  - TRANSIENT ISCHAEMIC ATTACK [None]
